FAERS Safety Report 4301125-1 (Version None)
Quarter: 2004Q1

REPORT INFORMATION
  Report Type: 
  Country: None (occurrence: None)
  Receive Date: 20040219
  Receipt Date: 20040206
  Transmission Date: 20041129
  Serious: Yes (Hospitalization)
  Sender: FDA-Public Use
  Company Number: 7420

PATIENT
  Age: 9 Year
  Sex: Female

DRUGS (1)
  1. METHOTREXATE [Suspect]
     Indication: BONE SARCOMA
     Dosage: 12.5 G ONCE IV
     Route: 042
     Dates: start: 20040105, end: 20040105

REACTIONS (7)
  - ANAEMIA [None]
  - CHEMOTHERAPEUTIC DRUG LEVEL ABOVE THERAPEUTIC [None]
  - DIALYSIS [None]
  - DRUG CLEARANCE DECREASED [None]
  - LIVER DISORDER [None]
  - RENAL DISORDER [None]
  - THROMBOCYTOPENIA [None]
